FAERS Safety Report 6464607-2 (Version None)
Quarter: 2009Q4

REPORT INFORMATION
  Report Type: 
  Country: None (occurrence: None)
  Receive Date: 20091201
  Receipt Date: 20091123
  Transmission Date: 20100525
  Serious: Yes (Hospitalization)
  Sender: FDA-Public Use
  Company Number: MX-MERCK-0911MEX00018

PATIENT
  Sex: Male

DRUGS (1)
  1. INVANZ [Suspect]
     Indication: PROPHYLAXIS
     Route: 042
     Dates: start: 20090101, end: 20090101

REACTIONS (2)
  - HEPATIC FUNCTION ABNORMAL [None]
  - POST PROCEDURAL COMPLICATION [None]
